FAERS Safety Report 10243755 (Version 2)
Quarter: 2015Q3

REPORT INFORMATION
  Report Type: Spontaneous
  Country: US (occurrence: US)
  Receive Date: 20140618
  Receipt Date: 20150717
  Transmission Date: 20151125
  Serious: Yes (Other)
  Sender: FDA-Public Use
  Company Number: US-SA-2014SA078255

PATIENT
  Age: 66 Year
  Sex: Female

DRUGS (2)
  1. PLAVIX [Suspect]
     Active Substance: CLOPIDOGREL BISULFATE
     Indication: STENT PLACEMENT
     Route: 048
     Dates: start: 2001, end: 2011
  2. ECOTRIN [Concomitant]
     Active Substance: ASPIRIN
     Dates: start: 2001, end: 20110729

REACTIONS (6)
  - Multiple injuries [Unknown]
  - Ulcer haemorrhage [Unknown]
  - Impaired healing [Unknown]
  - Cellulitis [Unknown]
  - Micrographic skin surgery [Unknown]
  - Gastrointestinal haemorrhage [Unknown]

NARRATIVE: CASE EVENT DATE: 201012
